FAERS Safety Report 4720485-0 (Version None)
Quarter: 2005Q3

REPORT INFORMATION
  Report Type: 
  Country: None (occurrence: None)
  Receive Date: 20050721
  Receipt Date: 20040927
  Transmission Date: 20060218
  Serious: No
  Sender: FDA-Public Use
  Company Number: US-BRISTOL-MYERS SQUIBB COMPANY-12712865

PATIENT
  Age: 58 Year
  Sex: Female
  Weight: 100 kg

DRUGS (5)
  1. GLUCOVANCE [Suspect]
     Indication: DIABETES MELLITUS
     Dosage: DOSAGE FORM = 2.5/500 MG DAILY
     Route: 048
     Dates: start: 20040901
  2. LOPRESSOR [Concomitant]
  3. LOTREL [Concomitant]
     Dosage: DOSAGE FORM = TABLET
  4. ASPIRIN [Concomitant]
     Dosage: DOSAGE FROM = ONE/DAY
  5. MULTI-VITAMIN [Concomitant]

REACTIONS (1)
  - BLOOD GLUCOSE INCREASED [None]
